FAERS Safety Report 16806238 (Version 5)
Quarter: 2020Q3

REPORT INFORMATION
  Report Type: Spontaneous
  Country: US (occurrence: US)
  Receive Date: 20190913
  Receipt Date: 20200708
  Transmission Date: 20201102
  Serious: Yes (Hospitalization, Other)
  Sender: FDA-Public Use
  Company Number: US-LEXICON PHARMACEUTICALS, INC-19-1606-00872

PATIENT
  Age: 46 Year
  Sex: Female

DRUGS (8)
  1. TELOTRISTAT ETHYL [Suspect]
     Active Substance: TELOTRISTAT ETHYL
     Route: 048
  2. SANDOSTATIN [Concomitant]
     Active Substance: OCTREOTIDE ACETATE
     Dosage: AND SANDOSTATIN SA AS NEEDED
  3. TELOTRISTAT ETHYL [Suspect]
     Active Substance: TELOTRISTAT ETHYL
     Indication: CARCINOID SYNDROME
     Route: 048
     Dates: start: 20190306
  4. TELOTRISTAT ETHYL [Suspect]
     Active Substance: TELOTRISTAT ETHYL
     Route: 048
  5. LANREOTIDE [Concomitant]
     Active Substance: LANREOTIDE
  6. SANDOSTATIN [Concomitant]
     Active Substance: OCTREOTIDE ACETATE
  7. TELOTRISTAT ETHYL [Suspect]
     Active Substance: TELOTRISTAT ETHYL
     Route: 048
  8. TELOTRISTAT ETHYL [Suspect]
     Active Substance: TELOTRISTAT ETHYL

REACTIONS (12)
  - Pain [Not Recovered/Not Resolved]
  - Dysphonia [Recovered/Resolved]
  - Tricuspid valve replacement [Recovering/Resolving]
  - Serum serotonin increased [Not Recovered/Not Resolved]
  - Invasive ductal breast carcinoma [Unknown]
  - Metastases to bone [Unknown]
  - Ovarian cyst [Unknown]
  - Radiotherapy [Not Recovered/Not Resolved]
  - Night sweats [Unknown]
  - Chest pain [Unknown]
  - Pulmonary valve replacement [Recovering/Resolving]
  - Fatigue [Unknown]

NARRATIVE: CASE EVENT DATE: 20190806
